FAERS Safety Report 15116072 (Version 1)
Quarter: 2018Q3

REPORT INFORMATION
  Report Type: Spontaneous
  Country: ES (occurrence: ES)
  Receive Date: 20180706
  Receipt Date: 20180706
  Transmission Date: 20181010
  Serious: Yes (Life-Threatening, Hospitalization, Disabling, Other)
  Sender: FDA-Public Use
  Company Number: ES-AUROBINDO-AUR-APL-2017-04683

PATIENT
  Age: 48 Year
  Sex: Female

DRUGS (1)
  1. VENLAFAXINE [Suspect]
     Active Substance: VENLAFAXINE HYDROCHLORIDE
     Indication: DEPRESSION
     Dosage: }7.5 G SINGLE DOSE
     Route: 065

REACTIONS (10)
  - Loss of consciousness [Recovering/Resolving]
  - Memory impairment [Unknown]
  - Impaired work ability [Unknown]
  - Disorientation [Unknown]
  - Stereotypy [Unknown]
  - Overdose [Recovered/Resolved with Sequelae]
  - Hyperreflexia [Unknown]
  - Muscle rigidity [Unknown]
  - Cognitive disorder [Recovering/Resolving]
  - Generalised tonic-clonic seizure [Unknown]
